FAERS Safety Report 18625763 (Version 1)
Quarter: 2020Q4

REPORT INFORMATION
  Report Type: Spontaneous
  Country: CN (occurrence: CN)
  Receive Date: 20201217
  Receipt Date: 20201217
  Transmission Date: 20210114
  Serious: Yes (Other)
  Sender: FDA-Public Use
  Company Number: CN-LUPIN PHARMACEUTICALS INC.-2020-05040

PATIENT
  Age: 3 Month
  Sex: Female

DRUGS (2)
  1. LEVETIRACETAM ORAL SOLUTION [Suspect]
     Active Substance: LEVETIRACETAM
     Indication: EPILEPSY
     Dosage: 0.6 MILLILITER, BID (100 MG/ML, 20 MG/KG DAYS)
     Route: 048
  2. LEVETIRACETAM ORAL SOLUTION [Suspect]
     Active Substance: LEVETIRACETAM
     Dosage: UNK, (DOSE INCREASED GRADUALLY EVERY MONTH BY 20 MG/KG UNTIL 60 MG/KG DAILY)
     Route: 048

REACTIONS (1)
  - Drug ineffective [Unknown]
